FAERS Safety Report 6523530-5 (Version None)
Quarter: 2009Q4

REPORT INFORMATION
  Report Type: 
  Country: None (occurrence: None)
  Receive Date: 20091231
  Receipt Date: 20091221
  Transmission Date: 20100525
  Serious: Yes (Other)
  Sender: FDA-Public Use
  Company Number: PHHY2009ES56369

PATIENT
  Age: 66 Year
  Sex: Male

DRUGS (6)
  1. EUCREAS [Suspect]
     Indication: BLOOD GLUCOSE FLUCTUATION
     Dosage: 850/50 TWICE DAILY
     Route: 048
     Dates: start: 20090511
  2. GITAZIDE [Concomitant]
  3. ENALAPRIL [Concomitant]
  4. TAMSULOSIN HCL [Concomitant]
  5. SIMVASTATIN [Concomitant]
  6. OMEPRAZOL [Concomitant]

REACTIONS (4)
  - ASPHYXIA [None]
  - CYANOSIS [None]
  - LARYNGEAL OEDEMA [None]
  - RESPIRATORY DISORDER [None]
